FAERS Safety Report 10495014 (Version 3)
Quarter: 2015Q1

REPORT INFORMATION
  Report Type: Spontaneous
  Country: FR (occurrence: FR)
  Receive Date: 20141003
  Receipt Date: 20150115
  Transmission Date: 20150720
  Serious: Yes (Hospitalization)
  Sender: FDA-Public Use
  Company Number: FR-GE HEALTHCARE MEDICAL DIAGNOSTICS-OMPQ-PR-1409S-1203

PATIENT
  Age: 72 Year
  Sex: Female

DRUGS (10)
  1. OMNIPAQUE [Suspect]
     Active Substance: IOHEXOL
     Dosage: DOSE NOT REPORTED
     Route: 042
     Dates: start: 20140425, end: 20140425
  2. OMNIPAQUE [Suspect]
     Active Substance: IOHEXOL
     Dosage: DOSE NOT REPORTED
     Route: 042
     Dates: start: 20140606, end: 20140606
  3. OMNIPAQUE [Suspect]
     Active Substance: IOHEXOL
     Dosage: DOSE NOT REPORTED
     Route: 042
     Dates: start: 20140829, end: 20140829
  4. PREVISCAN [Suspect]
     Active Substance: FLUINDIONE
     Route: 048
     Dates: start: 201403, end: 20140901
  5. OMNIPAQUE [Suspect]
     Active Substance: IOHEXOL
     Dosage: DOSE NOT REPORTED
     Route: 042
     Dates: start: 20140718, end: 20140718
  6. BISOPROLOL [Suspect]
     Active Substance: BISOPROLOL
     Route: 048
  7. LEVOTHYROX [Concomitant]
     Active Substance: LEVOTHYROXINE
     Indication: HYPOTHYROIDISM
     Route: 048
  8. OMNIPAQUE [Suspect]
     Active Substance: IOHEXOL
     Indication: DIAGNOSTIC PROCEDURE
     Dosage: DOSE NOT REPORTED
     Route: 042
     Dates: start: 20140408, end: 20140408
  9. PEMBROLIZUMAB. [Concomitant]
     Active Substance: PEMBROLIZUMAB
     Indication: MALIGNANT MELANOMA
     Dates: start: 20140127
  10. OMNIPAQUE [Suspect]
     Active Substance: IOHEXOL
     Indication: NEOPLASM MALIGNANT
     Dosage: DOSE NOT REPORTED
     Route: 042
     Dates: start: 20140324, end: 20140324

REACTIONS (1)
  - Renal failure [Not Recovered/Not Resolved]

NARRATIVE: CASE EVENT DATE: 20140606
